FAERS Safety Report 25041321 (Version 2)
Quarter: 2025Q1

REPORT INFORMATION
  Report Type: Spontaneous
  Country: US (occurrence: US)
  Receive Date: 20250305
  Receipt Date: 20250325
  Transmission Date: 20250408
  Serious: Yes (Death, Other)
  Sender: JOHNSON AND JOHNSON
  Company Number: US-MLMSERVICE-20250221-PI413434-00140-1

PATIENT
  Age: 61 Year
  Sex: Male

DRUGS (57)
  1. BENDAMUSTINE HYDROCHLORIDE [Suspect]
     Active Substance: BENDAMUSTINE HYDROCHLORIDE
     Indication: Marginal zone lymphoma
     Route: 065
  2. DARZALEX [Suspect]
     Active Substance: DARATUMUMAB
     Indication: Epstein-Barr virus associated lymphoma
     Route: 065
  3. DARZALEX [Suspect]
     Active Substance: DARATUMUMAB
     Indication: Cutaneous B-cell lymphoma
  4. DARZALEX [Suspect]
     Active Substance: DARATUMUMAB
     Indication: Marginal zone lymphoma
  5. DARZALEX [Suspect]
     Active Substance: DARATUMUMAB
     Indication: Lymphoma transformation
  6. DARZALEX [Suspect]
     Active Substance: DARATUMUMAB
     Indication: Plasmablastic lymphoma
  7. DARZALEX [Suspect]
     Active Substance: DARATUMUMAB
     Indication: Clonal haematopoiesis
  8. DARZALEX [Suspect]
     Active Substance: DARATUMUMAB
     Indication: Metastases to lymph nodes
  9. DARZALEX [Suspect]
     Active Substance: DARATUMUMAB
     Indication: Upper gastrointestinal haemorrhage
  10. DARZALEX [Suspect]
     Active Substance: DARATUMUMAB
     Indication: Gastric ulcer haemorrhage
  11. DARZALEX [Suspect]
     Active Substance: DARATUMUMAB
     Indication: Anaemia macrocytic
  12. BORTEZOMIB [Suspect]
     Active Substance: BORTEZOMIB
     Indication: Epstein-Barr virus infection
     Route: 065
     Dates: start: 2023, end: 2023
  13. BORTEZOMIB [Suspect]
     Active Substance: BORTEZOMIB
     Indication: Marginal zone lymphoma
  14. ETOPOSIDE PHOSPHATE [Suspect]
     Active Substance: ETOPOSIDE PHOSPHATE
     Indication: Epstein-Barr virus associated lymphoma
     Route: 065
     Dates: start: 2023, end: 2023
  15. ETOPOSIDE PHOSPHATE [Suspect]
     Active Substance: ETOPOSIDE PHOSPHATE
     Indication: Cutaneous B-cell lymphoma
  16. ETOPOSIDE PHOSPHATE [Suspect]
     Active Substance: ETOPOSIDE PHOSPHATE
     Indication: Marginal zone lymphoma
  17. ETOPOSIDE PHOSPHATE [Suspect]
     Active Substance: ETOPOSIDE PHOSPHATE
     Indication: Lymphoma transformation
  18. ETOPOSIDE PHOSPHATE [Suspect]
     Active Substance: ETOPOSIDE PHOSPHATE
     Indication: Plasmablastic lymphoma
  19. ETOPOSIDE PHOSPHATE [Suspect]
     Active Substance: ETOPOSIDE PHOSPHATE
     Indication: Clonal haematopoiesis
  20. ETOPOSIDE PHOSPHATE [Suspect]
     Active Substance: ETOPOSIDE PHOSPHATE
     Indication: Metastases to lymph nodes
  21. ETOPOSIDE PHOSPHATE [Suspect]
     Active Substance: ETOPOSIDE PHOSPHATE
     Indication: Upper gastrointestinal haemorrhage
  22. ETOPOSIDE PHOSPHATE [Suspect]
     Active Substance: ETOPOSIDE PHOSPHATE
     Indication: Gastric ulcer haemorrhage
  23. ETOPOSIDE PHOSPHATE [Suspect]
     Active Substance: ETOPOSIDE PHOSPHATE
     Indication: Anaemia macrocytic
  24. VINCRISTINE SULFATE [Suspect]
     Active Substance: VINCRISTINE SULFATE
     Indication: Epstein-Barr virus associated lymphoma
     Route: 065
     Dates: start: 2023, end: 2023
  25. VINCRISTINE SULFATE [Suspect]
     Active Substance: VINCRISTINE SULFATE
     Indication: Cutaneous B-cell lymphoma
  26. VINCRISTINE SULFATE [Suspect]
     Active Substance: VINCRISTINE SULFATE
     Indication: Marginal zone lymphoma
  27. VINCRISTINE SULFATE [Suspect]
     Active Substance: VINCRISTINE SULFATE
     Indication: Lymphoma transformation
  28. VINCRISTINE SULFATE [Suspect]
     Active Substance: VINCRISTINE SULFATE
     Indication: Plasmablastic lymphoma
  29. VINCRISTINE SULFATE [Suspect]
     Active Substance: VINCRISTINE SULFATE
     Indication: Clonal haematopoiesis
  30. VINCRISTINE SULFATE [Suspect]
     Active Substance: VINCRISTINE SULFATE
     Indication: Metastases to lymph nodes
  31. VINCRISTINE SULFATE [Suspect]
     Active Substance: VINCRISTINE SULFATE
     Indication: Upper gastrointestinal haemorrhage
  32. VINCRISTINE SULFATE [Suspect]
     Active Substance: VINCRISTINE SULFATE
     Indication: Gastric ulcer haemorrhage
  33. VINCRISTINE SULFATE [Suspect]
     Active Substance: VINCRISTINE SULFATE
     Indication: Anaemia macrocytic
  34. CYCLOPHOSPHAMIDE [Suspect]
     Active Substance: CYCLOPHOSPHAMIDE
     Indication: Epstein-Barr virus associated lymphoma
     Route: 065
     Dates: start: 2023, end: 2023
  35. CYCLOPHOSPHAMIDE [Suspect]
     Active Substance: CYCLOPHOSPHAMIDE
     Indication: Cutaneous B-cell lymphoma
  36. CYCLOPHOSPHAMIDE [Suspect]
     Active Substance: CYCLOPHOSPHAMIDE
     Indication: Marginal zone lymphoma
  37. CYCLOPHOSPHAMIDE [Suspect]
     Active Substance: CYCLOPHOSPHAMIDE
     Indication: Lymphoma transformation
  38. CYCLOPHOSPHAMIDE [Suspect]
     Active Substance: CYCLOPHOSPHAMIDE
     Indication: Plasmablastic lymphoma
  39. CYCLOPHOSPHAMIDE [Suspect]
     Active Substance: CYCLOPHOSPHAMIDE
     Indication: Clonal haematopoiesis
  40. CYCLOPHOSPHAMIDE [Suspect]
     Active Substance: CYCLOPHOSPHAMIDE
     Indication: Metastases to lymph nodes
  41. CYCLOPHOSPHAMIDE [Suspect]
     Active Substance: CYCLOPHOSPHAMIDE
     Indication: Upper gastrointestinal haemorrhage
  42. CYCLOPHOSPHAMIDE [Suspect]
     Active Substance: CYCLOPHOSPHAMIDE
     Indication: Gastric ulcer haemorrhage
  43. CYCLOPHOSPHAMIDE [Suspect]
     Active Substance: CYCLOPHOSPHAMIDE
     Indication: Anaemia macrocytic
  44. DOXORUBICIN [Suspect]
     Active Substance: DOXORUBICIN
     Indication: Epstein-Barr virus associated lymphoma
     Route: 065
     Dates: start: 2023, end: 2023
  45. DOXORUBICIN [Suspect]
     Active Substance: DOXORUBICIN
     Indication: Cutaneous B-cell lymphoma
  46. DOXORUBICIN [Suspect]
     Active Substance: DOXORUBICIN
     Indication: Marginal zone lymphoma
  47. DOXORUBICIN [Suspect]
     Active Substance: DOXORUBICIN
     Indication: Lymphoma transformation
  48. DOXORUBICIN [Suspect]
     Active Substance: DOXORUBICIN
     Indication: Plasmablastic lymphoma
  49. DOXORUBICIN [Suspect]
     Active Substance: DOXORUBICIN
     Indication: Clonal haematopoiesis
  50. DOXORUBICIN [Suspect]
     Active Substance: DOXORUBICIN
     Indication: Metastases to lymph nodes
  51. DOXORUBICIN [Suspect]
     Active Substance: DOXORUBICIN
     Indication: Upper gastrointestinal haemorrhage
  52. DOXORUBICIN [Suspect]
     Active Substance: DOXORUBICIN
     Indication: Gastric ulcer haemorrhage
  53. DOXORUBICIN [Suspect]
     Active Substance: DOXORUBICIN
     Indication: Anaemia macrocytic
  54. METHYLPREDNISOLONE [Suspect]
     Active Substance: METHYLPREDNISOLONE
     Indication: Psoriatic arthropathy
     Route: 050
  55. RITUXIMAB [Suspect]
     Active Substance: RITUXIMAB
     Indication: Marginal zone lymphoma
     Route: 050
  56. OBINUTUZUMAB [Suspect]
     Active Substance: OBINUTUZUMAB
     Indication: Marginal zone lymphoma
     Route: 050
  57. METHYLPREDNISOLONE [Concomitant]
     Active Substance: METHYLPREDNISOLONE
     Indication: Psoriatic arthropathy

REACTIONS (3)
  - Toxicity to various agents [Fatal]
  - Drug intolerance [Unknown]
  - Drug ineffective [Unknown]

NARRATIVE: CASE EVENT DATE: 20230101
